FAERS Safety Report 5343980-2 (Version None)
Quarter: 2007Q2

REPORT INFORMATION
  Report Type: 
  Country: None (occurrence: None)
  Receive Date: 20070604
  Receipt Date: 20070521
  Transmission Date: 20071010
  Serious: Yes (Other)
  Sender: FDA-Public Use
  Company Number: GB-AVENTIS-200714564GDDC

PATIENT
  Age: 28 Year
  Sex: Male
  Weight: 96 kg

DRUGS (3)
  1. METRONIDAZOLE [Suspect]
     Route: 048
     Dates: start: 20070418, end: 20070423
  2. METFORMIN HCL [Suspect]
     Indication: DIABETES MELLITUS
     Route: 048
     Dates: start: 20050101
  3. RAMIPRIL [Concomitant]
     Route: 048
     Dates: start: 20050101

REACTIONS (3)
  - ABDOMINAL PAIN [None]
  - DRUG INTERACTION [None]
  - GASTROINTESTINAL DISORDER [None]
